FAERS Safety Report 14889981 (Version 3)
Quarter: 2018Q2

REPORT INFORMATION
  Report Type: Spontaneous
  Country: BR (occurrence: BR)
  Receive Date: 20180514
  Receipt Date: 20180629
  Transmission Date: 20180711
  Serious: Yes (Hospitalization, Congenital Anomaly, Other)
  Sender: FDA-Public Use
  Company Number: BR-TEVA-2018-BR-892120

PATIENT
  Sex: Female

DRUGS (1)
  1. COPAXONE [Suspect]
     Active Substance: GLATIRAMER ACETATE
     Dosage: COPAXONE 20 MG/ML
     Route: 064

REACTIONS (8)
  - Congenital genital malformation [Unknown]
  - Disorder of sex development [Unknown]
  - Jaundice [Unknown]
  - Adrenomegaly [Unknown]
  - Foetal exposure during pregnancy [Unknown]
  - Weight increased [Unknown]
  - Enlarged clitoris [Unknown]
  - Adrenogenital syndrome [Unknown]
